FAERS Safety Report 4416179-1 (Version None)
Quarter: 2004Q2

REPORT INFORMATION
  Report Type: 
  Country: None (occurrence: None)
  Receive Date: 20040623
  Receipt Date: 20040421
  Transmission Date: 20050107
  Serious: Yes (Other)
  Sender: FDA-Public Use
  Company Number: WAES 0404USA01994

PATIENT

DRUGS (1)
  1. INVANZ [Suspect]
     Indication: INFECTION
     Dosage: 1 GM/1X/IV
     Route: 042
     Dates: start: 20040301, end: 20040301

REACTIONS (1)
  - CONVULSION [None]
